FAERS Safety Report 16734459 (Version 1)
Quarter: 2019Q3

REPORT INFORMATION
  Report Type: Report from Study
  Country: US (occurrence: US)
  Receive Date: 20190823
  Receipt Date: 20190823
  Transmission Date: 20191005
  Serious: No
  Sender: FDA-Public Use
  Company Number: PHEH2019US034792

PATIENT
  Sex: Male

DRUGS (1)
  1. ILARIS [Suspect]
     Active Substance: CANAKINUMAB
     Indication: STILL^S DISEASE
     Dosage: 60 MG, (EVERY 6 WEEKS)
     Route: 058

REACTIONS (5)
  - Erythema [Unknown]
  - Inappropriate schedule of product administration [Unknown]
  - Swelling [Unknown]
  - Urticaria [Unknown]
  - Arthropod bite [Unknown]
